FAERS Safety Report 8325941-4 (Version None)
Quarter: 2012Q2

REPORT INFORMATION
  Report Type: 
  Country: None (occurrence: None)
  Receive Date: 20120501
  Receipt Date: 20120419
  Transmission Date: 20120825
  Serious: No
  Sender: FDA-Public Use
  Company Number: US-BIOGENIDEC-2012BI014183

PATIENT
  Sex: Female

DRUGS (1)
  1. TYSABRI [Suspect]
     Indication: MULTIPLE SCLEROSIS
     Route: 042
     Dates: start: 20100215

REACTIONS (9)
  - HEARING IMPAIRED [None]
  - URINARY TRACT INFECTION [None]
  - LOCALISED INFECTION [None]
  - GAIT DISTURBANCE [None]
  - MULTIPLE SCLEROSIS RELAPSE [None]
  - THROAT IRRITATION [None]
  - EAR DISCOMFORT [None]
  - FALL [None]
  - LYMPHADENOPATHY [None]
